FAERS Safety Report 5239092-9 (Version None)
Quarter: 2007Q1

REPORT INFORMATION
  Report Type: 
  Country: None (occurrence: None)
  Receive Date: 20070209
  Receipt Date: 20070131
  Transmission Date: 20070707
  Serious: Yes (Death)
  Sender: FDA-Public Use
  Company Number: GXKR2007CH01302

PATIENT
  Age: 74 Year
  Sex: Female

DRUGS (2)
  1. METHYLPREDNISOLONE [Suspect]
     Indication: TEMPORAL ARTERITIS
     Dosage: 1000 MG/DAY, INTRAVENOUS
     Route: 042
  2. PREDNISONE [Suspect]
     Indication: TEMPORAL ARTERITIS
     Dosage: 100 MG/DAY, ORAL
     Route: 048

REACTIONS (14)
  - ASPERGILLOSIS [None]
  - BACTERIURIA [None]
  - BRONCHOPULMONARY ASPERGILLOSIS [None]
  - CARDIAC DISORDER [None]
  - CEREBRAL ASPERGILLOSIS [None]
  - CYTOMEGALOVIRUS INFECTION [None]
  - HAEMOPTYSIS [None]
  - HERPES SIMPLEX [None]
  - INFECTION IN AN IMMUNOCOMPROMISED HOST [None]
  - LUNG ABSCESS [None]
  - OESOPHAGITIS ULCERATIVE [None]
  - PNEUMOCYSTIS JIROVECI INFECTION [None]
  - PNEUMONIA KLEBSIELLA [None]
  - PYURIA [None]
